FAERS Safety Report 8270576-5 (Version None)
Quarter: 2012Q2

REPORT INFORMATION
  Report Type: 
  Country: None (occurrence: None)
  Receive Date: 20120410
  Receipt Date: 20120404
  Transmission Date: 20120825
  Serious: Yes (Hospitalization)
  Sender: FDA-Public Use
  Company Number: US-CELGENEUS-163-21880-12032160

PATIENT
  Sex: Male

DRUGS (4)
  1. FOLIC ACID [Concomitant]
     Dosage: 1 MILLIGRAM
     Route: 048
  2. REVLIMID [Suspect]
     Dosage: 10 MILLIGRAM
     Route: 048
     Dates: start: 20120301
  3. REVLIMID [Suspect]
     Indication: MYELODYSPLASTIC SYNDROME
     Dosage: 10 MILLIGRAM
     Route: 048
     Dates: start: 20111115, end: 20120301
  4. PYRIDOXINE HCL [Concomitant]
     Dosage: 50 MILLIGRAM
     Route: 048

REACTIONS (1)
  - ANAL FISSURE [None]
